FAERS Safety Report 8516956-1 (Version None)
Quarter: 2012Q3

REPORT INFORMATION
  Report Type: 
  Country: None (occurrence: None)
  Receive Date: 20120718
  Receipt Date: 20120709
  Transmission Date: 20120928
  Serious: Yes (Hospitalization)
  Sender: FDA-Public Use
  Company Number: US-JNJFOC-20120705798

PATIENT

DRUGS (2)
  1. INVEGA SUSTENNA [Suspect]
     Indication: PRODUCT USED FOR UNKNOWN INDICATION
     Dosage: MONTHLY
     Route: 030
     Dates: start: 20120702
  2. INVEGA SUSTENNA [Suspect]
     Dosage: MONTHLY
     Route: 030
     Dates: end: 20120702

REACTIONS (2)
  - DRUG INEFFECTIVE [None]
  - SEDATION [None]
